FAERS Safety Report 24351567 (Version 1)
Quarter: 2024Q3

REPORT INFORMATION
  Report Type: Spontaneous
  Country: US (occurrence: US)
  Receive Date: 20240923
  Receipt Date: 20240923
  Transmission Date: 20241017
  Serious: No
  Sender: REVANCE THERAPEUTICS
  Company Number: US-REVANCE THERAPEUTICS INC.-US-REV-2024-000417

PATIENT

DRUGS (2)
  1. DAXIBOTULINUMTOXIN A-LANM [Suspect]
     Active Substance: DAXIBOTULINUMTOXIN A-LANM
     Indication: Skin wrinkling
     Dosage: 24 UNITS (CROWS FEET), UNK UNITS (FOREHEAD), UNK UNITS (GLABELLA)
     Route: 065
     Dates: start: 20240622
  2. HYALURONIC ACID\LIDOCAINE [Suspect]
     Active Substance: HYALURONIC ACID\LIDOCAINE
     Indication: Product used for unknown indication
     Dosage: UNK LEFT CHEEK, 02. MIDFACE AND UNK PYRIFORM FOSSA
     Route: 065
     Dates: start: 202407

REACTIONS (2)
  - Facial asymmetry [Unknown]
  - Off label use [Unknown]

NARRATIVE: CASE EVENT DATE: 20240622
